FAERS Safety Report 5141796-3 (Version None)
Quarter: 2006Q4

REPORT INFORMATION
  Report Type: 
  Country: None (occurrence: None)
  Receive Date: 20061027
  Receipt Date: 20061016
  Transmission Date: 20070319
  Serious: Yes (Other)
  Sender: FDA-Public Use
  Company Number: 2006127162

PATIENT
  Age: 72 Year
  Sex: Female

DRUGS (1)
  1. NEURONTIN [Suspect]
     Indication: PAIN
     Dosage: 400 MG (400 MG, 1 IN 1  D), ORAL
     Route: 048
     Dates: start: 20061012, end: 20061012

REACTIONS (7)
  - BALANCE DISORDER [None]
  - DRUG INEFFECTIVE [None]
  - HEADACHE [None]
  - HYPOAESTHESIA ORAL [None]
  - INADEQUATE ANALGESIA [None]
  - SOMNOLENCE [None]
  - VOMITING [None]
